FAERS Safety Report 5032221-1 (Version None)
Quarter: 2006Q2

REPORT INFORMATION
  Report Type: 
  Country: None (occurrence: None)
  Receive Date: 20060619
  Receipt Date: 20060602
  Transmission Date: 20061013
  Serious: Yes (Other)
  Sender: FDA-Public Use
  Company Number: HQWYE982706JUN06

PATIENT
  Age: 80 Year
  Sex: Female
  Weight: 49.3 kg

DRUGS (1)
  1. PREMARIN [Suspect]
     Indication: OSTEOPOROSIS PROPHYLAXIS
     Dosage: 0.625 MG 1X PER 1 DAY, ORAL
     Route: 048
     Dates: start: 19650101

REACTIONS (3)
  - CONFUSIONAL STATE [None]
  - HEADACHE [None]
  - SHOCK [None]
